FAERS Safety Report 6395731-0 (Version None)
Quarter: 2009Q4

REPORT INFORMATION
  Report Type: 
  Country: None (occurrence: None)
  Receive Date: 20091009
  Receipt Date: 20090928
  Transmission Date: 20100525
  Serious: Yes (Other)
  Sender: FDA-Public Use
  Company Number: TR-TYCO HEALTHCARE/MALLINCKRODT-T200901825

PATIENT
  Age: 21 Year
  Sex: Male

DRUGS (3)
  1. FLUOXETINE [Interacting]
     Indication: DEPRESSION
     Dosage: 10 MG, QD
  2. ACITRETIN [Interacting]
     Indication: PUSTULAR PSORIASIS
     Dosage: 35 MG, QD
  3. CYCLOSPORINE [Suspect]
     Dosage: 200MG/DAY

REACTIONS (2)
  - DRUG INTERACTION [None]
  - PSORIASIS [None]
